FAERS Safety Report 18503114 (Version 1)
Quarter: 2020Q4

REPORT INFORMATION
  Report Type: Spontaneous
  Country: US (occurrence: US)
  Receive Date: 20201113
  Receipt Date: 20201113
  Transmission Date: 20210114
  Serious: Yes (Hospitalization, Other)
  Sender: FDA-Public Use
  Company Number: US-MYLANLABS-2020M1094186

PATIENT

DRUGS (1)
  1. MESALAMINE EXTENDED-RELEASE CAPSULES USP [Suspect]
     Active Substance: MESALAMINE
     Indication: COLITIS ULCERATIVE
     Dosage: 0.375 GRAM
     Route: 065
     Dates: start: 202007

REACTIONS (3)
  - Drug ineffective [Unknown]
  - Product substitution issue [Unknown]
  - Colitis ulcerative [Unknown]

NARRATIVE: CASE EVENT DATE: 202007
